FAERS Safety Report 10314967 (Version 3)
Quarter: 2014Q3

REPORT INFORMATION
  Report Type: Spontaneous
  Country: IE (occurrence: IE)
  Receive Date: 20140718
  Receipt Date: 20140820
  Transmission Date: 20150326
  Serious: Yes (Other)
  Sender: FDA-Public Use
  Company Number: PHHY2014IE087595

PATIENT
  Age: 56 Year
  Sex: Male

DRUGS (2)
  1. CEFTAL 500MG COATED TABLETS [Suspect]
     Active Substance: CEFUROXIME AXETIL
     Indication: ANTIBIOTIC PROPHYLAXIS
     Dosage: 500 MG, ONCE/SINGLE
     Route: 048
     Dates: start: 20140710, end: 20140710
  2. ZINNAT [Concomitant]
     Active Substance: CEFUROXIME AXETIL
     Indication: ANTIBIOTIC PROPHYLAXIS
     Dosage: 500 MG, BID
     Route: 048
     Dates: start: 20140710, end: 20140717

REACTIONS (4)
  - Vomiting [Recovered/Resolved]
  - Oral discomfort [Recovered/Resolved]
  - Throat irritation [Recovered/Resolved]
  - Dyspepsia [Recovered/Resolved]

NARRATIVE: CASE EVENT DATE: 20140710
